FAERS Safety Report 9900094 (Version 1)
Quarter: 2014Q1

REPORT INFORMATION
  Report Type: Spontaneous
  Country: JP (occurrence: JP)
  Receive Date: 20140214
  Receipt Date: 20140214
  Transmission Date: 20141002
  Serious: Yes (Hospitalization)
  Sender: FDA-Public Use
  Company Number: JP-ALLERGAN-1402513US

PATIENT
  Sex: Male

DRUGS (2)
  1. ALPHAGAN [Suspect]
     Indication: GLAUCOMA
     Dosage: 1 DROP TWICE DAILY IN THE LEFT EYE
     Route: 047
     Dates: start: 20140117, end: 20140127
  2. TAPROS [Concomitant]
     Dosage: UNK
     Route: 047
     Dates: start: 20121024

REACTIONS (2)
  - Loss of consciousness [Recovering/Resolving]
  - Hypertension [Recovering/Resolving]
